FAERS Safety Report 8126476-4 (Version None)
Quarter: 2012Q1

REPORT INFORMATION
  Report Type: 
  Country: None (occurrence: None)
  Receive Date: 20120209
  Receipt Date: 20120201
  Transmission Date: 20120608
  Serious: Yes (Other)
  Sender: FDA-Public Use
  Company Number: US-ASTRAZENECA-2011SE44850

PATIENT
  Age: 55 Year
  Sex: Male

DRUGS (1)
  1. CRESTOR [Suspect]
     Route: 048

REACTIONS (4)
  - MULTIPLE MYELOMA [None]
  - BONE NEOPLASM MALIGNANT [None]
  - CARDIAC DISORDER [None]
  - SPINAL FRACTURE [None]
